FAERS Safety Report 5962838-9 (Version None)
Quarter: 2008Q4

REPORT INFORMATION
  Report Type: 
  Country: None (occurrence: None)
  Receive Date: 20081124
  Receipt Date: 20081118
  Transmission Date: 20090506
  Serious: Yes (Hospitalization)
  Sender: FDA-Public Use
  Company Number: FR-BAYER-200830881GPV

PATIENT
  Age: 15 Year
  Sex: Female

DRUGS (2)
  1. ADALAT [Suspect]
     Indication: DRUG USE FOR UNKNOWN INDICATION
     Dosage: UNIT DOSE: 20 MG
     Route: 048
     Dates: start: 20070916, end: 20070916
  2. CYTOTEC [Suspect]
     Indication: DRUG USE FOR UNKNOWN INDICATION
     Dosage: UNIT DOSE: 1 DF
     Route: 048
     Dates: start: 20070916, end: 20070916

REACTIONS (2)
  - CHILLS [None]
  - PYREXIA [None]
